FAERS Safety Report 9863492 (Version 2)
Quarter: 2014Q1

REPORT INFORMATION
  Report Type: Spontaneous
  Country: BR (occurrence: BR)
  Receive Date: 20140203
  Receipt Date: 20140320
  Transmission Date: 20141002
  Serious: Yes (Other)
  Sender: FDA-Public Use
  Company Number: BR-ELI_LILLY_AND_COMPANY-BR201401008825

PATIENT
  Age: 82 Year
  Sex: Female

DRUGS (1)
  1. FORTEO [Suspect]
     Indication: OSTEOPOROTIC FRACTURE
     Dosage: UNK, UNKNOWN
     Route: 058
     Dates: start: 201309, end: 201312

REACTIONS (8)
  - Lymphocyte count abnormal [Unknown]
  - Dizziness [Recovered/Resolved]
  - Weight decreased [Recovered/Resolved]
  - Asthenia [Recovering/Resolving]
  - Blood parathyroid hormone decreased [Unknown]
  - Renal impairment [Unknown]
  - Depression [Unknown]
  - Blood calcium increased [Unknown]
